FAERS Safety Report 6194548-X (Version None)
Quarter: 2009Q2

REPORT INFORMATION
  Report Type: 
  Country: None (occurrence: None)
  Receive Date: 20090519
  Receipt Date: 20070412
  Transmission Date: 20091009
  Serious: Yes (Hospitalization, Other)
  Sender: FDA-Public Use
  Company Number: US-ASTRAZENECA-2006UW21046

PATIENT
  Age: 14596 Day
  Sex: Male
  Weight: 88.5 kg

DRUGS (29)
  1. SEROQUEL [Suspect]
     Indication: SCHIZOPHRENIA
     Route: 048
     Dates: start: 20000101
  2. SEROQUEL [Suspect]
     Indication: DEPRESSION
     Route: 048
     Dates: start: 20000101
  3. SEROQUEL [Suspect]
     Route: 048
     Dates: start: 20000101
  4. SEROQUEL [Suspect]
     Route: 048
     Dates: start: 20000101
  5. SEROQUEL [Suspect]
     Dosage: 25-600MG
     Route: 048
     Dates: start: 20000101
  6. SEROQUEL [Suspect]
     Dosage: 25-600MG
     Route: 048
     Dates: start: 20000101
  7. RISPERDAL [Suspect]
     Route: 065
  8. PAXIL [Suspect]
     Indication: DEPRESSION
     Route: 048
  9. VIOXX [Concomitant]
     Indication: ARTHRALGIA
     Dosage: 25-50 MG
     Route: 048
  10. LIPITOR [Concomitant]
     Dosage: 10 MG TO 30 MG
     Route: 048
  11. PROBENECID [Concomitant]
     Route: 048
  12. GABITRIL [Concomitant]
     Route: 048
  13. CLARITIN [Concomitant]
     Route: 048
  14. ASPIRIN [Concomitant]
     Route: 048
  15. ZANTAC [Concomitant]
     Route: 048
  16. CELEBREX [Concomitant]
     Route: 048
  17. NEXIUM [Concomitant]
     Route: 048
  18. VOLTAREN [Concomitant]
     Route: 048
  19. MAXZIDE [Concomitant]
     Dosage: 25 / 37.5 MG FOUR TIMES A DAY
     Route: 048
  20. TENORMIN [Concomitant]
     Dosage: 50 MG TO 100 MG
     Route: 048
  21. PRILOSEC [Concomitant]
     Route: 048
  22. IMITREX [Concomitant]
     Dosage: 50 MG TO 100 MG
     Route: 048
  23. ZOLOFT [Concomitant]
     Indication: DEPRESSION
     Dosage: 50 MG TO 100 MG
     Route: 048
  24. WELLBUTRIN [Concomitant]
     Dosage: 150 MG TO 300 MG
     Route: 048
  25. XANAX [Concomitant]
     Indication: ANXIETY
     Route: 048
  26. LISINOPRIL [Concomitant]
     Indication: HYPERTENSION
     Route: 048
  27. GLUCOPHAGE [Concomitant]
     Route: 048
  28. FLEXERIL [Concomitant]
     Dosage: 5 MG TO 10 MG
     Route: 048
  29. VIAGRA [Concomitant]
     Route: 048

REACTIONS (29)
  - AFFECTIVE DISORDER [None]
  - ARTHRITIS [None]
  - BACK PAIN [None]
  - BRONCHITIS [None]
  - CYST [None]
  - DIABETES MELLITUS [None]
  - DYSPHAGIA [None]
  - ERECTILE DYSFUNCTION [None]
  - GASTRITIS [None]
  - GASTROOESOPHAGEAL REFLUX DISEASE [None]
  - GYNAECOMASTIA [None]
  - HEADACHE [None]
  - HYPERGLYCAEMIC HYPEROSMOLAR NONKETOTIC SYNDROME [None]
  - HYPERLIPIDAEMIA [None]
  - HYPERTENSION [None]
  - HYPOACUSIS [None]
  - HYPOAESTHESIA [None]
  - HYPOGLYCAEMIA [None]
  - INTERVERTEBRAL DISC PROTRUSION [None]
  - JOINT SPRAIN [None]
  - MIGRAINE [None]
  - NON-CARDIAC CHEST PAIN [None]
  - OTITIS MEDIA [None]
  - PERICARDITIS [None]
  - SCHIZOPHRENIA [None]
  - SCROTAL CYST [None]
  - SEXUAL DYSFUNCTION [None]
  - SLEEP APNOEA SYNDROME [None]
  - TACHYCARDIA [None]
